FAERS Safety Report 22208772 (Version 4)
Quarter: 2023Q2

REPORT INFORMATION
  Report Type: Report from Study
  Country: TR (occurrence: None)
  Receive Date: 20230413
  Receipt Date: 20230421
  Transmission Date: 20230722
  Serious: Yes (Life-Threatening, Hospitalization)
  Sender: FDA-Public Use
  Company Number: TR-ROCHE-3247866

PATIENT
  Age: 56 Year
  Sex: Male
  Weight: 72.8 kg

DRUGS (7)
  1. ENTRECTINIB [Suspect]
     Active Substance: ENTRECTINIB
     Indication: Non-small cell lung cancer metastatic
     Dosage: START DATE OF MOST RECENT DOSE OF STUDY DRUG PRIOR TO AE/SAE OF PNEUMONIA-19-DEC-2022 AND DOSE WAS 6
     Route: 048
     Dates: start: 20221214
  2. OMEPRAZOLE [Concomitant]
     Active Substance: OMEPRAZOLE
     Route: 048
     Dates: start: 202210
  3. PAROL [Concomitant]
     Active Substance: ACETAMINOPHEN
     Dosage: EVERY OTHER DAY (Q.O.D.)
     Route: 048
     Dates: start: 202210
  4. CONTRAMAL RETARD [Concomitant]
     Route: 048
     Dates: start: 202210
  5. FENTANYL [Concomitant]
     Active Substance: FENTANYL
     Route: 062
     Dates: start: 202210
  6. APRANAX FORTE [Concomitant]
     Route: 048
     Dates: start: 202210
  7. OSMOLAK [Concomitant]
     Route: 048
     Dates: start: 20230228

REACTIONS (2)
  - Pneumonia [Recovered/Resolved]
  - Pleural effusion [Recovering/Resolving]

NARRATIVE: CASE EVENT DATE: 20221219
